FAERS Safety Report 14350515 (Version 1)
Quarter: 2018Q1

REPORT INFORMATION
  Report Type: Spontaneous
  Country: US (occurrence: US)
  Receive Date: 20180104
  Receipt Date: 20180104
  Transmission Date: 20180509
  Serious: Yes (Hospitalization)
  Sender: FDA-Public Use
  Company Number: US-PFIZER INC-2018002210

PATIENT
  Age: 47 Year
  Sex: Male
  Weight: 87 kg

DRUGS (3)
  1. VFEND [Suspect]
     Active Substance: VORICONAZOLE
     Dosage: 1 DF, 2X/DAY
     Route: 048
     Dates: start: 20171230
  2. VFEND [Suspect]
     Active Substance: VORICONAZOLE
     Indication: ASPERGILLUS INFECTION
     Dosage: 1.5 DF, 2X/DAY
     Route: 048
     Dates: start: 20171205
  3. VICKS NYQUIL [Concomitant]
     Active Substance: ACETAMINOPHEN\DEXTROMETHORPHAN HYDROBROMIDE\DOXYLAMINE SUCCINATE
     Indication: NASOPHARYNGITIS
     Dosage: 2 CAPSULES BY MOUTH EVERY 6 HOURS AS NEEDED
     Route: 048

REACTIONS (5)
  - Haemoptysis [Recovering/Resolving]
  - Drug dose omission [Unknown]
  - Dyspnoea [Recovering/Resolving]
  - Condition aggravated [Recovering/Resolving]
  - Wheezing [Recovering/Resolving]

NARRATIVE: CASE EVENT DATE: 201712
